FAERS Safety Report 19300892 (Version 1)
Quarter: 2021Q2

REPORT INFORMATION
  Report Type: Spontaneous
  Country: US (occurrence: US)
  Receive Date: 20210525
  Receipt Date: 20210525
  Transmission Date: 20210717
  Serious: Yes (Death)
  Sender: FDA-Public Use
  Company Number: None

PATIENT
  Age: 61 Year
  Sex: Male

DRUGS (1)
  1. REVLIMID [Suspect]
     Active Substance: LENALIDOMIDE
     Indication: DIFFUSE LARGE B-CELL LYMPHOMA
     Route: 048
     Dates: start: 20210302, end: 20210419

REACTIONS (3)
  - Multiple organ dysfunction syndrome [None]
  - Interstitial lung disease [None]
  - Hypersensitivity pneumonitis [None]

NARRATIVE: CASE EVENT DATE: 20210516
